FAERS Safety Report 21676253 (Version 3)
Quarter: 2022Q4

REPORT INFORMATION
  Report Type: Report from Study
  Country: NL (occurrence: None)
  Receive Date: 20221202
  Receipt Date: 20221227
  Transmission Date: 20230112
  Serious: Yes (Hospitalization)
  Sender: FDA-Public Use
  Company Number: NL-Merck Healthcare KGaA-9366104

PATIENT
  Age: 34 Year
  Sex: Female

DRUGS (2)
  1. MAVENCLAD [Suspect]
     Active Substance: CLADRIBINE
     Indication: Relapsing-remitting multiple sclerosis
     Dosage: YEAR ONE WEEK ONE THERAPY.
     Route: 048
     Dates: start: 20211122
  2. MAVENCLAD [Suspect]
     Active Substance: CLADRIBINE
     Dosage: YEAR ONE WEEK FIVE THERAPY.
     Route: 048
     Dates: start: 20211220

REACTIONS (2)
  - Infected bite [Recovered/Resolved]
  - Weight decreased [Not Recovered/Not Resolved]
